FAERS Safety Report 9118741 (Version 1)
Quarter: 2013Q1

REPORT INFORMATION
  Report Type: Spontaneous
  Country: JP (occurrence: JP)
  Receive Date: 20130226
  Receipt Date: 20130226
  Transmission Date: 20140127
  Serious: Yes (Death)
  Sender: FDA-Public Use
  Company Number: JP-PFIZER INC-2013067968

PATIENT
  Age: 85 Year
  Sex: Male
  Weight: 63 kg

DRUGS (22)
  1. ZOSYN [Suspect]
     Indication: PNEUMONIA ASPIRATION
     Dosage: 4.5 G, 3X/DAY
     Route: 041
     Dates: start: 20130204, end: 20130205
  2. VANCOMYCIN HCL [Suspect]
     Indication: SEPSIS
     Dosage: 1 G/DAY
     Route: 041
     Dates: start: 20130131, end: 20130206
  3. MAINTATE [Concomitant]
     Dosage: UNK
     Route: 048
  4. DAI-KENCHU-TO [Concomitant]
     Dosage: UNK
     Route: 048
  5. TAKEPRON [Concomitant]
     Route: 048
  6. BAYASPIRIN [Concomitant]
     Dosage: UNK
     Route: 048
  7. MIYA-BM [Concomitant]
     Dosage: UNK
     Route: 048
  8. MONILAC [Concomitant]
     Route: 048
  9. RISPERDAL [Concomitant]
     Dosage: UNK
     Route: 048
  10. SIGMART [Concomitant]
     Dosage: UNK
     Route: 048
  11. ERYTHROCIN [Concomitant]
     Dosage: UNK
     Route: 048
  12. URSO [Concomitant]
     Dosage: UNK
     Route: 048
  13. GLYCYRON [Concomitant]
     Dosage: UNK
  14. DIGOSIN [Concomitant]
     Dosage: UNK
     Route: 042
  15. BOSMIN [Concomitant]
     Dosage: UNK
  16. FRAGMIN [Concomitant]
     Dosage: UNK
     Route: 041
  17. NORADRENALINE [Concomitant]
     Dosage: UNK
  18. KIDMIN [Concomitant]
     Indication: RENAL FAILURE
     Dosage: UNK
     Route: 041
  19. VITAJECT [Concomitant]
     Dosage: UNK
     Route: 041
  20. PANTHENYL [Concomitant]
     Dosage: UNK
     Route: 042
  21. PRIMPERAN [Concomitant]
     Route: 042
  22. ELEJECT [Concomitant]
     Route: 041

REACTIONS (1)
  - Pancytopenia [Fatal]
